FAERS Safety Report 7395855-5 (Version None)
Quarter: 2011Q2

REPORT INFORMATION
  Report Type: 
  Country: None (occurrence: None)
  Receive Date: 20110405
  Receipt Date: 20110329
  Transmission Date: 20111010
  Serious: No
  Sender: FDA-Public Use
  Company Number: US-BAYER-2011-028880

PATIENT
  Sex: Female
  Weight: 50 kg

DRUGS (2)
  1. ALEVE (CAPLET) [Suspect]
     Indication: INTENTIONAL SELF-INJURY
     Dosage: 1320 MG, ONCE, BOTTLE COUNT 50S
     Route: 048
     Dates: start: 20110329, end: 20110329
  2. CAFFEINE [Concomitant]
     Indication: INTENTIONAL SELF-INJURY
     Dosage: 1540 MG, ONCE
     Route: 048
     Dates: start: 20110329, end: 20110329

REACTIONS (2)
  - DIZZINESS [None]
  - NAUSEA [None]
